FAERS Safety Report 18378715 (Version 1)
Quarter: 2020Q4

REPORT INFORMATION
  Report Type: Report from Study
  Country: None (occurrence: US)
  Receive Date: 20201014
  Receipt Date: 20201014
  Transmission Date: 20210114
  Serious: Yes (Other)
  Sender: FDA-Public Use
  Company Number: US-ABBVIE-20K-163-3601900-00

PATIENT
  Sex: Female

DRUGS (1)
  1. HUMIRA [Suspect]
     Active Substance: ADALIMUMAB
     Indication: CROHN^S DISEASE
     Dosage: CITRATE FREE
     Route: 058
     Dates: start: 20170814, end: 202008

REACTIONS (4)
  - Blindness [Recovered/Resolved]
  - Eye inflammation [Recovered/Resolved]
  - Psoriasis [Recovered/Resolved]
  - Gastrointestinal inflammation [Recovered/Resolved]
